FAERS Safety Report 18098003 (Version 2)
Quarter: 2020Q3

REPORT INFORMATION
  Report Type: Spontaneous
  Country: US (occurrence: US)
  Receive Date: 20200731
  Receipt Date: 20200812
  Transmission Date: 20201103
  Serious: Yes (Other)
  Sender: FDA-Public Use
  Company Number: US-SA-2020SA193395

PATIENT

DRUGS (1)
  1. LANTUS SOLOSTAR [Suspect]
     Active Substance: INSULIN GLARGINE
     Dosage: UNK
     Route: 065

REACTIONS (9)
  - Gait disturbance [Unknown]
  - Anger [Unknown]
  - Ligament sprain [Unknown]
  - Localised infection [Unknown]
  - Multiple allergies [Unknown]
  - Panic attack [Unknown]
  - Angioedema [Unknown]
  - Agitation [Unknown]
  - Blood glucose decreased [Unknown]
